FAERS Safety Report 7776949 (Version 9)
Quarter: 2012Q4

REPORT INFORMATION
  Report Type: 
  Country: US (occurrence: US)
  Receive Date: 20110127
  Receipt Date: 20121123
  Transmission Date: 20130627
  Serious: Yes (Hospitalization)
  Sender: FDA-Public Use
  Company Number: PHHY2011US04885

PATIENT
  Age: 65 Year
  Sex: Female

DRUGS (3)
  1. MYFORTIC [Suspect]
     Indication: RENAL TRANSPLANT
     Dosage: 340 mg, BID
     Route: 048
     Dates: start: 200701
  2. MYFORTIC [Suspect]
     Dosage: 360 mg, BID
     Route: 048
     Dates: start: 20110614
  3. DILANTIN [Suspect]
     Dosage: UNK UKN, UNK

REACTIONS (11)
  - Fall [Unknown]
  - Wrist fracture [Unknown]
  - Dysstasia [Unknown]
  - Arthralgia [Unknown]
  - Kidney transplant rejection [Not Recovered/Not Resolved]
  - Blood creatinine increased [Unknown]
  - Prescribed overdose [Unknown]
  - Somnolence [Not Recovered/Not Resolved]
  - Malaise [Not Recovered/Not Resolved]
  - Vomiting [Not Recovered/Not Resolved]
  - Pain [Not Recovered/Not Resolved]
